FAERS Safety Report 6763675-8 (Version None)
Quarter: 2010Q2

REPORT INFORMATION
  Report Type: 
  Country: None (occurrence: None)
  Receive Date: 20100610
  Receipt Date: 20100604
  Transmission Date: 20101027
  Serious: Yes (Other)
  Sender: FDA-Public Use
  Company Number: NL-BAYER-201027715GPV

PATIENT
  Sex: Female

DRUGS (2)
  1. BETAFERON [Suspect]
     Indication: DRUG USE FOR UNKNOWN INDICATION
     Dosage: AS USED: 250 ?G/ML
     Route: 058
     Dates: start: 20090326
  2. SERTRALINE HCL [Concomitant]

REACTIONS (3)
  - RETINAL EXUDATES [None]
  - RETINOPATHY [None]
  - VISUAL IMPAIRMENT [None]
